FAERS Safety Report 10010134 (Version 1)
Quarter: 2014Q1

REPORT INFORMATION
  Report Type: Spontaneous
  Country: US (occurrence: US)
  Receive Date: 20140312
  Receipt Date: 20140312
  Transmission Date: 20141002
  Serious: No
  Sender: FDA-Public Use
  Company Number: US-INCYTE CORPORATION-2013IN001384

PATIENT
  Sex: Female

DRUGS (7)
  1. JAKAFI [Suspect]
     Indication: ESSENTIAL THROMBOCYTHAEMIA
     Dosage: 10 MG, BID
     Route: 048
     Dates: start: 2013, end: 2013
  2. JAKAFI [Suspect]
     Dosage: 10 MG, QD
     Route: 048
     Dates: start: 2013
  3. METFORMIN [Concomitant]
  4. SYNTHROID [Concomitant]
  5. PRAVASTATIN [Concomitant]
  6. VITAMIN C [Concomitant]
  7. MULTIVITAMIN SUPPLEMENT [Concomitant]

REACTIONS (3)
  - Tremor [Unknown]
  - Blood glucose decreased [Unknown]
  - Dizziness [Unknown]
